FAERS Safety Report 16055333 (Version 1)
Quarter: 2019Q1

REPORT INFORMATION
  Report Type: Spontaneous
  Country: US (occurrence: US)
  Receive Date: 20190311
  Receipt Date: 20190311
  Transmission Date: 20190418
  Serious: No
  Sender: FDA-Public Use
  Company Number: US-TEVA-2019-US-1021715

PATIENT
  Sex: Female

DRUGS (1)
  1. AUSTEDO [Suspect]
     Active Substance: DEUTETRABENAZINE
     Indication: DYSKINESIA
     Dosage: 12 MILLIGRAM DAILY;
     Route: 048

REACTIONS (4)
  - Hypersensitivity [Unknown]
  - Product use in unapproved indication [Unknown]
  - Feeling abnormal [Unknown]
  - Paraesthesia [Unknown]
